FAERS Safety Report 7154188-2 (Version None)
Quarter: 2010Q4

REPORT INFORMATION
  Report Type: 
  Country: None (occurrence: None)
  Receive Date: 20101213
  Receipt Date: 20101201
  Transmission Date: 20110411
  Serious: Yes (Hospitalization, Other)
  Sender: FDA-Public Use
  Company Number: MX-ELI_LILLY_AND_COMPANY-MX201011003826

PATIENT
  Age: 22 Year
  Sex: Male
  Weight: 66 kg

DRUGS (4)
  1. HUMALOG [Suspect]
     Dosage: UNK, AS NEEDED
     Route: 058
     Dates: start: 20040101
  2. HUMALOG [Suspect]
     Dosage: UNK, AS NEEDED
     Route: 058
  3. CREON [Concomitant]
     Dosage: UNK, 3/D
     Dates: start: 20070101
  4. LANTUS [Concomitant]
     Dosage: 20 IU, DAILY (1/D)
     Dates: start: 20040101

REACTIONS (5)
  - GASTRECTOMY [None]
  - HOSPITALISATION [None]
  - INJECTION SITE PAIN [None]
  - INTESTINAL RESECTION [None]
  - PANCREATIC MASS [None]
